FAERS Safety Report 11257569 (Version 1)
Quarter: 2015Q3

REPORT INFORMATION
  Report Type: Spontaneous
  Country: US (occurrence: US)
  Receive Date: 20150709
  Receipt Date: 20150709
  Transmission Date: 20151125
  Serious: No
  Sender: FDA-Public Use
  Company Number: US-ASTRAZENECA-2015SE66832

PATIENT
  Age: 35 Year
  Sex: Male

DRUGS (2)
  1. NEXIUM 24HR [Suspect]
     Active Substance: ESOMEPRAZOLE MAGNESIUM
     Indication: DYSPEPSIA
     Route: 048
  2. HOMEOPATHIC REMEDIES [Concomitant]

REACTIONS (3)
  - Somnolence [Unknown]
  - Drug effect incomplete [Unknown]
  - Headache [Unknown]
